FAERS Safety Report 15325684 (Version 1)
Quarter: 2018Q3

REPORT INFORMATION
  Report Type: Spontaneous
  Country: US (occurrence: US)
  Receive Date: 20180822
  Receipt Date: 20180822
  Transmission Date: 20181010
  Serious: No
  Sender: FDA-Public Use
  Company Number: None

PATIENT
  Age: 68 Year
  Sex: Female

DRUGS (2)
  1. VOSEVI [Suspect]
     Active Substance: SOFOSBUVIR\VELPATASVIR\VOXILAPREVIR
     Indication: HEPATITIS C
  2. RIBAVIRIN. [Concomitant]
     Active Substance: RIBAVIRIN

REACTIONS (2)
  - Vomiting [None]
  - Nausea [None]

NARRATIVE: CASE EVENT DATE: 20180822
